FAERS Safety Report 12690702 (Version 6)
Quarter: 2019Q2

REPORT INFORMATION
  Report Type: Report from Study
  Country: US (occurrence: US)
  Receive Date: 20160826
  Receipt Date: 20190411
  Transmission Date: 20190711
  Serious: Yes (Hospitalization, Other)
  Sender: FDA-Public Use
  Company Number: US-ARIAD PHARMACEUTICALS, INC-2016US006563

PATIENT
  Age: 29 Year
  Sex: Female

DRUGS (7)
  1. PONATINIB [Suspect]
     Active Substance: PONATINIB
     Dosage: 30 MG, QD
     Route: 048
     Dates: start: 20160505, end: 20160804
  2. HYPER CVAD [Suspect]
     Active Substance: CYCLOPHOSPHAMIDE\CYTARABINE\DEXAMETHASONE\DOXORUBICIN\METHOTREXATE\VINCRISTINE
     Indication: PRODUCT USED FOR UNKNOWN INDICATION
     Dosage: UNK
     Route: 065
     Dates: start: 20140815
  3. PONATINIB [Suspect]
     Active Substance: PONATINIB
     Dosage: 15 MILLIGRAM, QD
     Route: 048
  4. BLINATUMOMAB [Suspect]
     Active Substance: BLINATUMOMAB
     Indication: PRODUCT USED FOR UNKNOWN INDICATION
     Dosage: UNK
     Route: 065
     Dates: start: 20160505
  5. SIROLIMUS. [Concomitant]
     Active Substance: SIROLIMUS
     Dosage: UNK
     Route: 065
  6. PONATINIB [Suspect]
     Active Substance: PONATINIB
     Indication: ACUTE LYMPHOCYTIC LEUKAEMIA
     Dosage: UNK
     Route: 048
     Dates: start: 20140815
  7. PONATINIB [Suspect]
     Active Substance: PONATINIB
     Dosage: 30 MG, QD
     Route: 048

REACTIONS (21)
  - Upper respiratory tract infection [Unknown]
  - Weight fluctuation [Unknown]
  - Radiculopathy [Unknown]
  - Stem cell transplant [Unknown]
  - Decreased appetite [Unknown]
  - Haematoma [Unknown]
  - Arthralgia [Unknown]
  - Vomiting [Unknown]
  - Device related thrombosis [Unknown]
  - Deep vein thrombosis [Unknown]
  - Cytomegalovirus test positive [Unknown]
  - Chemotherapy [Unknown]
  - Viral rash [Unknown]
  - Liver function test increased [Unknown]
  - Nausea [Unknown]
  - Central venous catheterisation [Unknown]
  - Procedural pain [Unknown]
  - Osteonecrosis [Unknown]
  - Headache [Unknown]
  - Pneumonia respiratory syncytial viral [Unknown]
  - Rash [Unknown]

NARRATIVE: CASE EVENT DATE: 20160717
